FAERS Safety Report 24531575 (Version 1)
Quarter: 2024Q4

REPORT INFORMATION
  Report Type: Report from Study
  Country: BR (occurrence: BR)
  Receive Date: 20241022
  Receipt Date: 20241022
  Transmission Date: 20250115
  Serious: No
  Sender: ROCHE
  Company Number: BR-ROCHE-3530317

PATIENT
  Age: 30 Year
  Sex: Male
  Weight: 65.0 kg

DRUGS (7)
  1. PULMOZYME [Suspect]
     Active Substance: DORNASE ALFA
     Indication: Cystic fibrosis
     Route: 065
  2. TOBRAMYCIN [Concomitant]
     Active Substance: TOBRAMYCIN\TOBRAMYCIN SULFATE
     Indication: Cystic fibrosis
  3. VITAMIN A [Concomitant]
     Active Substance: VITAMIN A
     Indication: Cystic fibrosis
  4. ERGOCALCIFEROL [Concomitant]
     Active Substance: ERGOCALCIFEROL
     Indication: Cystic fibrosis
  5. VITAMIN E [Concomitant]
     Active Substance: .ALPHA.-TOCOPHEROL
     Indication: Cystic fibrosis
  6. VITAMIN K [Concomitant]
     Active Substance: PHYTONADIONE
     Indication: Cystic fibrosis
  7. AZITHROMYCIN [Concomitant]
     Active Substance: AZITHROMYCIN
     Indication: Cystic fibrosis

REACTIONS (3)
  - Pneumonia [Recovered/Resolved]
  - Increased bronchial secretion [Recovered/Resolved]
  - Sinusitis [Recovered/Resolved]
